FAERS Safety Report 6542690-3 (Version None)
Quarter: 2010Q1

REPORT INFORMATION
  Report Type: 
  Country: None (occurrence: None)
  Receive Date: 20100119
  Receipt Date: 20100114
  Transmission Date: 20100710
  Serious: Yes (Other)
  Sender: FDA-Public Use
  Company Number: PT-MERCK-1001PRT00004

PATIENT
  Age: 64 Year
  Sex: Male

DRUGS (1)
  1. COSOPT [Suspect]
     Indication: GLAUCOMA
     Route: 047

REACTIONS (4)
  - COUGH [None]
  - PERIPHERAL COLDNESS [None]
  - PROSTATIC SPECIFIC ANTIGEN INCREASED [None]
  - RASH [None]
